FAERS Safety Report 6717898-4 (Version None)
Quarter: 2010Q2

REPORT INFORMATION
  Report Type: 
  Country: None (occurrence: None)
  Receive Date: 20100510
  Receipt Date: 20100503
  Transmission Date: 20101027
  Serious: Yes (Other)
  Sender: FDA-Public Use
  Company Number: A0858071A

PATIENT
  Sex: Female

DRUGS (6)
  1. NICORETTE [Suspect]
     Indication: SMOKING CESSATION THERAPY
     Route: 002
  2. CHANTIX [Suspect]
     Indication: SMOKING CESSATION THERAPY
     Route: 048
     Dates: start: 20080101, end: 20080101
  3. CELEXA [Concomitant]
     Indication: ANXIETY
  4. NORCO [Concomitant]
     Indication: BACK PAIN
  5. IBUPROFEN [Concomitant]
  6. VITAMIN B-12 [Concomitant]

REACTIONS (6)
  - ANGER [None]
  - DIZZINESS [None]
  - FATIGUE [None]
  - FEELING OF DESPAIR [None]
  - GAIT DISTURBANCE [None]
  - HALLUCINATION [None]
